FAERS Safety Report 5770569-3 (Version None)
Quarter: 2008Q2

REPORT INFORMATION
  Report Type: 
  Country: None (occurrence: None)
  Receive Date: 20080613
  Receipt Date: 20080506
  Transmission Date: 20081010
  Serious: No
  Sender: FDA-Public Use
  Company Number: US-ABBOTT-08P-163-0450747-00

PATIENT
  Sex: Female
  Weight: 43.13 kg

DRUGS (14)
  1. HUMIRA [Suspect]
     Indication: CROHN'S DISEASE
     Dates: start: 20060301
  2. PRENATAL VITAMIN NOS [Concomitant]
     Indication: PREGNANCY
     Dosage: 1 PILL DAILY
     Route: 048
     Dates: start: 20070101, end: 20070905
  3. FOLIC ACID [Concomitant]
     Indication: DRUG USE FOR UNKNOWN INDICATION
     Dosage: 1 PILL DAILY
     Route: 048
     Dates: start: 20061130, end: 20061230
  4. MULTI-VITAMIN [Concomitant]
     Indication: DRUG USE FOR UNKNOWN INDICATION
     Dosage: 1 PILL DAILY
     Route: 048
     Dates: start: 20061130, end: 20061230
  5. CALCIUM [Concomitant]
     Indication: DRUG USE FOR UNKNOWN INDICATION
     Dosage: 1 PILL DAILY
     Route: 048
     Dates: start: 20061215, end: 20070905
  6. LIQUOR [Concomitant]
     Indication: DRUG USE FOR UNKNOWN INDICATION
     Dosage: 4-5 DRINKS DAILY AT ONE TIME
     Route: 048
     Dates: start: 20061201, end: 20061215
  7. BUDESONIDE [Concomitant]
     Indication: CROHN'S DISEASE
     Dosage: 1 PILL, 3.5 PILLS TOTAL
     Route: 048
     Dates: start: 20061201, end: 20061230
  8. CETIRIZINE HYDROCHLORIDE [Concomitant]
     Indication: HYPERSENSITIVITY
     Dosage: 1 PILL 2.5 TIMES PER WEEK
     Route: 048
     Dates: start: 20061130, end: 20070905
  9. MONTELUKAST SODIUM [Concomitant]
     Indication: ASTHMA
     Dosage: 1 PILL DAILY
     Route: 048
     Dates: start: 20061130, end: 20070905
  10. RISEDRONATE SODIUM [Concomitant]
     Indication: OSTEOARTHRITIS
     Dosage: 1 PILL WEEKLY
     Route: 048
     Dates: start: 20061130, end: 20061215
  11. CAFFEINE [Concomitant]
     Indication: DRUG USE FOR UNKNOWN INDICATION
     Dosage: 1 CAN 5-6 TIMES PER WEEK
     Route: 048
     Dates: start: 20061130, end: 20070430
  12. CAFFEINE [Concomitant]
     Dosage: 1 CAN 2-3X/WK 1 SERVIN 2.5 WK
     Dates: start: 20070501, end: 20070905
  13. IMODIUM [Concomitant]
     Indication: CROHN'S DISEASE
     Dosage: 1 PILL, 4.5 DOSES TOTAL
     Route: 048
     Dates: start: 20070219, end: 20070417
  14. BUDESONIDE [Concomitant]
     Indication: ASTHMA
     Route: 055
     Dates: start: 20070601, end: 20070730

REACTIONS (11)
  - COUGH [None]
  - DYSPEPSIA [None]
  - HAEMORRHAGE [None]
  - HEADACHE [None]
  - NASAL CONGESTION [None]
  - NASOPHARYNGITIS [None]
  - NAUSEA [None]
  - NECK PAIN [None]
  - PERINEAL LACERATION [None]
  - RESPIRATORY TRACT INFECTION [None]
  - VOMITING [None]
